FAERS Safety Report 9527631 (Version 3)
Quarter: 2013Q4

REPORT INFORMATION
  Report Type: Spontaneous
  Country: DE (occurrence: DE)
  Receive Date: 20130917
  Receipt Date: 20131028
  Transmission Date: 20140711
  Serious: Yes (Hospitalization)
  Sender: FDA-Public Use
  Company Number: DE-SHIRE-ALL1-2013-06151

PATIENT
  Age: 4 Year
  Sex: Male
  Weight: 25 kg

DRUGS (3)
  1. ELVANSE [Suspect]
     Indication: ATTENTION DEFICIT/HYPERACTIVITY DISORDER
     Dosage: 10 MG, ONE DOSE (30MG CAPSULE, GIVEN THE EQUIVALENT OF 10MG FROM CAPSULE)
     Route: 048
     Dates: start: 20130905, end: 20130905
  2. VIANI [Concomitant]
     Indication: ASTHMA
     Dosage: UNK (1-0-1), 2X/DAY:BID
     Route: 065
  3. SALBUTAMOL [Concomitant]
     Indication: PRODUCT USED FOR UNKNOWN INDICATION
     Dosage: 1 DF, 3X/DAY:TID
     Route: 065

REACTIONS (12)
  - Paradoxical drug reaction [Not Recovered/Not Resolved]
  - Athetosis [Not Recovered/Not Resolved]
  - Confusional state [Not Recovered/Not Resolved]
  - Psychotic disorder [Not Recovered/Not Resolved]
  - Restlessness [Not Recovered/Not Resolved]
  - Hallucination, visual [Not Recovered/Not Resolved]
  - Pyrexia [Not Recovered/Not Resolved]
  - Insomnia [Not Recovered/Not Resolved]
  - Mydriasis [Not Recovered/Not Resolved]
  - Tic [Not Recovered/Not Resolved]
  - Prescribed underdose [Recovered/Resolved]
  - Off label use [Recovered/Resolved]
